FAERS Safety Report 4595420-9 (Version None)
Quarter: 2005Q1

REPORT INFORMATION
  Report Type: 
  Country: None (occurrence: None)
  Receive Date: 20050224
  Receipt Date: 20050207
  Transmission Date: 20050727
  Serious: Yes (Hospitalization, Other)
  Sender: FDA-Public Use
  Company Number: USA030742221

PATIENT
  Age: 75 Year
  Sex: Female

DRUGS (1)
  1. FORTEO [Suspect]
     Indication: OSTEOPOROSIS
     Dosage: 20 UG/1 DAY
     Dates: start: 20030328

REACTIONS (7)
  - BONE DENSITY DECREASED [None]
  - CONDITION AGGRAVATED [None]
  - DIARRHOEA [None]
  - GASTRIC OUTLET OBSTRUCTION [None]
  - NIGHT CRAMPS [None]
  - PHARMACEUTICAL PRODUCT COMPLAINT [None]
  - STRESS [None]
